FAERS Safety Report 24820022 (Version 2)
Quarter: 2025Q1

REPORT INFORMATION
  Report Type: Spontaneous
  Country: CH (occurrence: CH)
  Receive Date: 20250108
  Receipt Date: 20250113
  Transmission Date: 20250409
  Serious: Yes (Other)
  Sender: ROCHE
  Company Number: CH-BoehringerIngelheim-2025-BI-000139

PATIENT
  Age: 86 Year
  Sex: Female

DRUGS (2)
  1. ALTEPLASE [Suspect]
     Active Substance: ALTEPLASE
     Indication: Middle cerebral artery stroke
     Route: 042
  2. ALTEPLASE [Suspect]
     Active Substance: ALTEPLASE
     Indication: Cerebral artery occlusion

REACTIONS (5)
  - Puncture site haematoma [Recovered/Resolved]
  - Oedema [Recovering/Resolving]
  - Administration site extravasation [Unknown]
  - Product administration error [Unknown]
  - Arthralgia [Recovered/Resolved]
